FAERS Safety Report 4357058-8 (Version None)
Quarter: 2004Q2

REPORT INFORMATION
  Report Type: 
  Country: None (occurrence: None)
  Receive Date: 20040512
  Receipt Date: 20040511
  Transmission Date: 20050107
  Serious: Yes (Death, Hospitalization, Disabling)
  Sender: FDA-Public Use
  Company Number: NL-BRISTOL-MYERS SQUIBB COMPANY-12584207

PATIENT
  Age: 78 Year
  Sex: Female

DRUGS (8)
  1. CISPLATIN [Suspect]
     Indication: NON-SMALL CELL LUNG CANCER
     Dosage: DAY 1
     Route: 042
     Dates: start: 20020826
  2. GEMCITABINE HCL [Suspect]
     Indication: NON-SMALL CELL LUNG CANCER
     Dosage: DAYS 1 AND 8
     Route: 042
     Dates: start: 20020826
  3. ISIS 3521 [Suspect]
     Indication: NON-SMALL CELL LUNG CANCER
     Dates: start: 20020826
  4. POTASSIUM [Concomitant]
     Indication: BLOOD POTASSIUM DECREASED
     Route: 048
     Dates: start: 20020916
  5. LACTULOSE [Concomitant]
     Indication: CONSTIPATION
     Dates: start: 20021015, end: 20021015
  6. EPREX [Concomitant]
     Indication: ANAEMIA
     Dates: start: 20020917, end: 20021018
  7. AUGMENTIN [Concomitant]
     Indication: INFECTION
     Dates: start: 20021014, end: 20021018
  8. INNOHEP [Concomitant]
     Indication: PROPHYLAXIS
     Dates: start: 20021014, end: 20021018

REACTIONS (2)
  - LOBAR PNEUMONIA [None]
  - SHOCK [None]
